FAERS Safety Report 15050115 (Version 1)
Quarter: 2018Q2

REPORT INFORMATION
  Report Type: Spontaneous
  Country: GB (occurrence: GB)
  Receive Date: 20180622
  Receipt Date: 20180622
  Transmission Date: 20180711
  Serious: Yes (Other)
  Sender: FDA-Public Use
  Company Number: GB-B. BRAUN MEDICAL INC.-2049842

PATIENT
  Age: 73 Year
  Sex: Female
  Weight: 62 kg

DRUGS (12)
  1. ALVERINE CITRATE [Concomitant]
     Active Substance: ALVERINE CITRATE
     Dates: start: 20160224
  2. ASPIRIN. [Concomitant]
     Active Substance: ASPIRIN
     Dates: start: 20160224
  3. VANCOCIN [Concomitant]
     Active Substance: VANCOMYCIN HYDROCHLORIDE
     Dates: start: 20170202
  4. ROSUVASTATIN. [Concomitant]
     Active Substance: ROSUVASTATIN
     Dates: start: 20160224
  5. NICORANDIL [Concomitant]
     Active Substance: NICORANDIL
     Dates: start: 20160224
  6. DIPROBASE [Concomitant]
     Active Substance: CHLOROCRESOL
     Dates: start: 20160224
  7. ISOSORBIDE MONONITRATE. [Concomitant]
     Active Substance: ISOSORBIDE MONONITRATE
     Dates: start: 20160224
  8. METRONIDAZOLE INJECTION USP (5 MG/ML) IN PAB? PLASTIC CONTAINER [Suspect]
     Active Substance: METRONIDAZOLE
     Dates: start: 20170117
  9. BISOPROLOL [Concomitant]
     Active Substance: BISOPROLOL
     Dates: start: 20160224
  10. OMEPRAZOLE. [Concomitant]
     Active Substance: OMEPRAZOLE
     Dates: start: 20160224
  11. DERMOL [Concomitant]
     Active Substance: BENZALKONIUM CHLORIDE\CHLORHEXIDINE HYDROCHLORIDE\ISOPROPYL MYRISTATE\PARAFFIN
     Dates: start: 20160224
  12. RAMIPRIL. [Concomitant]
     Active Substance: RAMIPRIL
     Dates: start: 20160224

REACTIONS (3)
  - Headache [Recovered/Resolved]
  - Malaise [Recovered/Resolved]
  - Urinary incontinence [Recovered/Resolved]

NARRATIVE: CASE EVENT DATE: 20170202
